FAERS Safety Report 9096767 (Version 1)
Quarter: 2013Q1

REPORT INFORMATION
  Report Type: Spontaneous
  Country: FR (occurrence: FR)
  Receive Date: 20130211
  Receipt Date: 20130211
  Transmission Date: 20140127
  Serious: Yes (Life-Threatening, Hospitalization, Other)
  Sender: FDA-Public Use
  Company Number: FR-ELI_LILLY_AND_COMPANY-FR201302000251

PATIENT
  Age: 39 None
  Sex: Female

DRUGS (4)
  1. ZYPREXA [Suspect]
     Dosage: 17.5 MG, QD
     Route: 048
     Dates: start: 2011, end: 20120812
  2. TEMERIT [Concomitant]
     Dosage: 5 MG, QD
  3. LERCAN [Concomitant]
     Dosage: 20 MG, QD
  4. INEXIUM [Concomitant]
     Dosage: 20 MG, QD

REACTIONS (7)
  - Blood creatine phosphokinase increased [Recovered/Resolved]
  - Dyskinesia [Recovered/Resolved]
  - Renal failure acute [Recovered/Resolved]
  - General physical health deterioration [Recovered/Resolved]
  - Escherichia test positive [Recovered/Resolved]
  - Toxicity to various agents [Recovered/Resolved]
  - Blood glucose abnormal [Recovered/Resolved]
